FAERS Safety Report 4642923-4 (Version None)
Quarter: 2005Q2

REPORT INFORMATION
  Report Type: 
  Country: None (occurrence: None)
  Receive Date: 20050421
  Receipt Date: 20050411
  Transmission Date: 20051028
  Serious: Yes (Hospitalization)
  Sender: FDA-Public Use
  Company Number: 04P-056-0262652-00

PATIENT
  Age: 55 Year
  Sex: Female
  Weight: 61.5 kg

DRUGS (10)
  1. HUMIRA [Suspect]
     Indication: RHEUMATOID ARTHRITIS
     Dosage: 40 MG, 1 IN 2 WK, SUBCUTANEOUS
     Route: 058
     Dates: start: 20030926, end: 20031223
  2. ETANERCEPT [Concomitant]
  3. METHOTREXATE [Concomitant]
  4. PREDNISONE [Concomitant]
  5. CLONAZEPAM [Concomitant]
  6. KETOPROFEN [Concomitant]
  7. OMEPRAZOLE [Concomitant]
  8. LEKOVIT CA [Concomitant]
  9. PROPOFAN [Concomitant]
  10. AZATHIOPRINE [Concomitant]

REACTIONS (29)
  - AMYLOIDOSIS [None]
  - ARTHROPATHY [None]
  - ASTHENIA [None]
  - ASTHMA [None]
  - ATELECTASIS [None]
  - BENCE JONES PROTEINURIA [None]
  - BLOOD PARATHYROID HORMONE DECREASED [None]
  - BONE INFECTION [None]
  - BONE MARROW LEUKAEMIC CELL INFILTRATION [None]
  - BONE NEOPLASM MALIGNANT [None]
  - CONDITION AGGRAVATED [None]
  - DISLOCATION OF VERTEBRA [None]
  - HYPERGAMMAGLOBULINAEMIA BENIGN MONOCLONAL [None]
  - INTERVERTEBRAL DISC DEGENERATION [None]
  - LIGHT CHAIN ANALYSIS INCREASED [None]
  - MULTIPLE MYELOMA [None]
  - NEPHROLITHIASIS [None]
  - OSTEOPENIA [None]
  - PERICARDITIS [None]
  - PLASMA CELL DISORDER [None]
  - PLASMA CELLS INCREASED [None]
  - PLASMACYTOSIS [None]
  - PLEURAL EFFUSION [None]
  - PLEURISY [None]
  - RASH MACULAR [None]
  - RHEUMATOID ARTHRITIS [None]
  - SPINAL COLUMN STENOSIS [None]
  - STREPTOCOCCAL INFECTION [None]
  - WEIGHT DECREASED [None]
